FAERS Safety Report 8609794-2 (Version None)
Quarter: 2012Q3

REPORT INFORMATION
  Report Type: 
  Country: None (occurrence: None)
  Receive Date: 20120821
  Receipt Date: 20120813
  Transmission Date: 20120928
  Serious: Yes (Other)
  Sender: FDA-Public Use
  Company Number: CHPA2012US018141

PATIENT
  Age: 68 Year
  Sex: Female

DRUGS (8)
  1. TRANXENE [Concomitant]
     Indication: NERVE INJURY
     Dosage: UNK
     Dates: start: 19890101
  2. ACETYLSALICYLIC ACID SRT [Suspect]
     Dosage: 81 MG, UNK
  3. ANTIHYPERTENSIVE DRUGS [Suspect]
     Indication: MYOCARDIAL INFARCTION
     Dosage: UNK, UNK
  4. BETA BLOCKING AGENTS [Suspect]
     Dosage: UNK, UNK
  5. ACETYLSALICYLIC ACID SRT [Suspect]
     Indication: MYOCARDIAL INFARCTION
     Dosage: 325 MG, UNK
  6. EXCEDRIN EXTRA STRENGTH CAPLETS [Suspect]
     Indication: MIGRAINE
     Dosage: 1-2 DF, PRN
     Route: 048
  7. PLAVIX [Suspect]
     Indication: MYOCARDIAL INFARCTION
     Dosage: UNK, UNK
  8. ANTIHYPERTENSIVE DRUGS [Suspect]
     Dosage: UNK, UNK

REACTIONS (6)
  - UNDERDOSE [None]
  - HEADACHE [None]
  - MYOCARDIAL INFARCTION [None]
  - CONTUSION [None]
  - THROMBOSIS [None]
  - BLOOD CHOLESTEROL INCREASED [None]
